FAERS Safety Report 7376415-9 (Version None)
Quarter: 2011Q1

REPORT INFORMATION
  Report Type: 
  Country: None (occurrence: None)
  Receive Date: 20110317
  Receipt Date: 20110228
  Transmission Date: 20110831
  Serious: Yes (Hospitalization)
  Sender: FDA-Public Use
  Company Number: BE-001580

PATIENT
  Sex: Male
  Weight: 98 kg

DRUGS (12)
  1. PREDNISOLONE [Suspect]
     Indication: RENAL TRANSPLANT
     Dosage: (3 MG QD)
     Dates: start: 20020901
  2. TRAZOLAN [Concomitant]
  3. TACROLIMUS [Suspect]
     Indication: RENAL TRANSPLANT
     Dosage: (ORAL)
     Route: 048
     Dates: start: 20020101
  4. ZYLORIC [Concomitant]
  5. CELLCEPT [Concomitant]
  6. GLURENORM [Concomitant]
  7. ATENOLOL [Concomitant]
  8. AMLODIPINE BESYLATE [Concomitant]
  9. DETHYRONE [Concomitant]
  10. DEGARELIX (DEGARELIX) [Suspect]
     Indication: PROSTATE CANCER
     Dosage: (240 MG SUBCUTANEOUS), (80 MG SUBCUTANEOUS)
     Route: 058
     Dates: start: 20090804, end: 20090804
  11. DEGARELIX (DEGARELIX) [Suspect]
     Indication: PROSTATE CANCER
     Dosage: (240 MG SUBCUTANEOUS), (80 MG SUBCUTANEOUS)
     Route: 058
     Dates: start: 20090901, end: 20100119
  12. DEGARELIX (DEGARELIX) [Suspect]

REACTIONS (2)
  - DIABETES MELLITUS [None]
  - CONDITION AGGRAVATED [None]
